FAERS Safety Report 7016470-9 (Version None)
Quarter: 2010Q3

REPORT INFORMATION
  Report Type: 
  Country: None (occurrence: None)
  Receive Date: 20100927
  Receipt Date: 20100921
  Transmission Date: 20110219
  Serious: Yes (Hospitalization)
  Sender: FDA-Public Use
  Company Number: A0747057A

PATIENT
  Age: 77 Year
  Sex: Female

DRUGS (11)
  1. ADVAIR DISKUS 100/50 [Suspect]
     Indication: CHRONIC OBSTRUCTIVE PULMONARY DISEASE
     Dosage: 1PUFF TWICE PER DAY
     Route: 055
     Dates: start: 20050101
  2. IPRATROPIUM BROMIDE [Concomitant]
  3. ALBUTEROL [Concomitant]
  4. ANTIHYPERTENSIVE [Concomitant]
  5. ANTI-CHOLESTEROL MEDICATION [Concomitant]
  6. VITAMINS [Concomitant]
  7. COQ10 [Concomitant]
  8. UNKNOWN [Concomitant]
  9. EYE DROP [Concomitant]
  10. UNSPECIFIED MEDICATION [Concomitant]
  11. SUPPLEMENT [Concomitant]

REACTIONS (5)
  - CATARACT [None]
  - DYSPNOEA [None]
  - PNEUMONIA [None]
  - TREATMENT NONCOMPLIANCE [None]
  - VISUAL ACUITY REDUCED [None]
